FAERS Safety Report 9580800 (Version 4)
Quarter: 2014Q1

REPORT INFORMATION
  Report Type: Spontaneous
  Country: JP (occurrence: JP)
  Receive Date: 20131002
  Receipt Date: 20140114
  Transmission Date: 20141002
  Serious: Yes (Other)
  Sender: FDA-Public Use
  Company Number: JP-PFIZER INC-2013278475

PATIENT
  Age: 6 Year
  Sex: Female
  Weight: 17.1 kg

DRUGS (5)
  1. ALDACTONE A [Suspect]
     Indication: CARDIAC DISORDER
     Dosage: 10 MG, 3X/DAY
     Route: 048
     Dates: end: 20131010
  2. LASIX [Concomitant]
     Indication: CARDIAC DISORDER
     Dosage: 10 MG, 3X/DAY
     Route: 048
  3. ASPARA K [Concomitant]
     Dosage: 100 MG, 2X/DAY
     Route: 048
  4. BUFFERIN [Concomitant]
     Indication: THROMBOSIS
     Dosage: 1 DF, 1X/DAY
     Route: 048
  5. WARFARIN [Concomitant]
     Indication: THROMBOSIS
     Dosage: 0.7 MG, 2X/DAY
     Route: 048

REACTIONS (2)
  - Precocious puberty [Not Recovered/Not Resolved]
  - Pharyngitis [Unknown]
